FAERS Safety Report 8889350 (Version 1)
Quarter: 2012Q4

REPORT INFORMATION
  Report Type: Spontaneous
  Country: US (occurrence: None)
  Receive Date: 20121102
  Receipt Date: 20121102
  Transmission Date: 20130627
  Serious: No
  Sender: FDA-Public Use
  Company Number: None

PATIENT
  Age: 32 Year
  Sex: Female
  Weight: 50 kg

DRUGS (1)
  1. SAPHRIS [Suspect]
     Indication: BIPOLAR DISORDER
     Dosage: 5mg unknown po
     Route: 048
     Dates: start: 20111216, end: 20111229

REACTIONS (6)
  - Hypersensitivity [None]
  - Dystonia [None]
  - Swollen tongue [None]
  - Grimacing [None]
  - Dysarthria [None]
  - Somnolence [None]
